FAERS Safety Report 5634217-5 (Version None)
Quarter: 2008Q1

REPORT INFORMATION
  Report Type: 
  Country: None (occurrence: None)
  Receive Date: 20080221
  Receipt Date: 20080221
  Transmission Date: 20080703
  Serious: Yes (Hospitalization)
  Sender: FDA-Public Use
  Company Number: None

PATIENT
  Sex: Female
  Weight: 65.7716 kg

DRUGS (2)
  1. GAMMAGARD LIQUID [Suspect]
     Indication: MYASTHENIA GRAVIS
     Dosage: 30GM DAILY X 4 DAYS IV DRIP
     Route: 041
     Dates: start: 20080213, end: 20080216
  2. GAMMAGARD LIQUID [Suspect]
     Dosage: 30GM DAILY X 4 DAYS IV DRIP
     Route: 041

REACTIONS (6)
  - HEADACHE [None]
  - HYPOAESTHESIA [None]
  - INFUSION RELATED REACTION [None]
  - MENINGOCOCCAL SEPSIS [None]
  - NO THERAPEUTIC RESPONSE [None]
  - PARAESTHESIA [None]
